FAERS Safety Report 10776913 (Version 1)
Quarter: 2015Q1

REPORT INFORMATION
  Report Type: Spontaneous
  Country: CH (occurrence: CH)
  Receive Date: 20150209
  Receipt Date: 20150209
  Transmission Date: 20150721
  Serious: Yes (Other)
  Sender: FDA-Public Use
  Company Number: PHHY2015CH013247

PATIENT
  Sex: Female

DRUGS (4)
  1. SANDOSTATIN LAR DEPOT [Suspect]
     Active Substance: OCTREOTIDE ACETATE
     Indication: NEUROENDOCRINE TUMOUR
     Dosage: 30 MG, QMO
     Route: 065
     Dates: start: 20140605, end: 20140909
  2. SANDOSTATIN LAR DEPOT [Suspect]
     Active Substance: OCTREOTIDE ACETATE
     Indication: CUSHING^S SYNDROME
  3. KETOCONAZOL [Concomitant]
     Dosage: 200 MG, 3 X / J
     Route: 065
     Dates: start: 20140701
  4. KETOCONAZOL [Concomitant]
     Indication: PRODUCT USED FOR UNKNOWN INDICATION
     Dosage: 200 MG, 2 X/ J
     Route: 065
     Dates: start: 20140513

REACTIONS (3)
  - Cervix carcinoma stage 0 [Unknown]
  - Breast cancer [Unknown]
  - Cardiac failure [Unknown]
